FAERS Safety Report 5267949-1 (Version None)
Quarter: 2007Q1

REPORT INFORMATION
  Report Type: 
  Country: None (occurrence: None)
  Receive Date: 20061213
  Receipt Date: 20020314
  Transmission Date: 20070707
  Serious: Yes (Disabling)
  Sender: FDA-Public Use
  Company Number: 2001UW16706

PATIENT
  Age: 61 Year
  Sex: Female
  Weight: 75.7507 kg

DRUGS (8)
  1. NOLVADEX [Suspect]
     Indication: BREAST CANCER
     Dosage: 20 MG PO
     Route: 048
     Dates: start: 20010501, end: 20011201
  2. NOLVADEX [Suspect]
     Indication: BREAST CANCER
     Dosage: 20 MG DAILY PO
     Route: 048
     Dates: start: 20020103, end: 20020125
  3. TAMOXIFEN CITRATE [Suspect]
     Indication: BREAST CANCER
     Dosage: 20 MG PO
     Route: 048
     Dates: start: 20011201, end: 20011218
  4. MAXIDEX [Concomitant]
  5. LASIX [Concomitant]
  6. VITAMIN B COMPLEX CAP [Concomitant]
  7. MULTIVITAMIN ^LAPPE^ [Concomitant]
  8. CALCIUM [Concomitant]

REACTIONS (2)
  - JOINT SWELLING [None]
  - OEDEMA PERIPHERAL [None]
